FAERS Safety Report 4402090-9 (Version None)
Quarter: 2004Q3

REPORT INFORMATION
  Report Type: 
  Country: None (occurrence: None)
  Receive Date: 20040714
  Receipt Date: 20040703
  Transmission Date: 20050211
  Serious: Yes (Other)
  Sender: FDA-Public Use
  Company Number: 2004222086US

PATIENT
  Age: 21 Year
  Sex: Female
  Weight: 60.5 kg

DRUGS (1)
  1. DEPO-PROVERA [Suspect]
     Indication: CONTRACEPTION
     Dosage: 150 MG, FIRST INJECTION,
     Dates: start: 20040426, end: 20040426

REACTIONS (12)
  - ABDOMINAL PAIN [None]
  - ACNE [None]
  - CHEST PAIN [None]
  - DIZZINESS [None]
  - DYSPAREUNIA [None]
  - DYSPNOEA [None]
  - FEAR [None]
  - HEADACHE [None]
  - HYPERSOMNIA [None]
  - HYPOAESTHESIA [None]
  - METRORRHAGIA [None]
  - PAIN IN EXTREMITY [None]
